FAERS Safety Report 4544516-6 (Version None)
Quarter: 2004Q4

REPORT INFORMATION
  Report Type: 
  Country: None (occurrence: None)
  Receive Date: 20041230
  Receipt Date: 20041215
  Transmission Date: 20050328
  Serious: Yes (Hospitalization, Other)
  Sender: FDA-Public Use
  Company Number: 200413489BCC

PATIENT
  Age: 17 Year
  Sex: Female
  Weight: 81.6475 kg

DRUGS (2)
  1. RID MOUSSE [Suspect]
     Indication: LICE INFESTATION
     Dosage: ONCE, TOPICAL
     Route: 061
     Dates: start: 20040702
  2. VITAMINS NOS [Concomitant]

REACTIONS (7)
  - BURNING SENSATION [None]
  - CAESAREAN SECTION [None]
  - DRUG EXPOSURE DURING PREGNANCY [None]
  - DRUG INEFFECTIVE [None]
  - ERYTHEMA [None]
  - FOETAL HEART RATE DECREASED [None]
  - UMBILICAL CORD AROUND NECK [None]
